FAERS Safety Report 10187379 (Version 1)
Quarter: 2014Q2

REPORT INFORMATION
  Report Type: Spontaneous
  Country: FR (occurrence: FR)
  Receive Date: 20140522
  Receipt Date: 20140522
  Transmission Date: 20141212
  Serious: Yes (Other)
  Sender: FDA-Public Use
  Company Number: FR-PFIZER INC-2014138477

PATIENT
  Sex: Male

DRUGS (3)
  1. METHYLPREDNISOLONE [Suspect]
     Indication: LUPUS NEPHRITIS
     Dosage: 1 G, DAILY (ON DAYS 1 AND 15)
  2. MYCOPHENOLATE MOFETIL [Suspect]
     Indication: LUPUS NEPHRITIS
     Dosage: 500 MG, 2X/DAY
  3. RITUXIMAB [Suspect]
     Indication: LUPUS NEPHRITIS
     Dosage: 2 G, DAILY (ON DAYS 1 AND 15)

REACTIONS (1)
  - Type 2 diabetes mellitus [Unknown]
